FAERS Safety Report 11594261 (Version 1)
Quarter: 2015Q4

REPORT INFORMATION
  Report Type: Spontaneous
  Country: US (occurrence: US)
  Receive Date: 20151005
  Receipt Date: 20151005
  Transmission Date: 20160304
  Serious: Yes (Other)
  Sender: FDA-Public Use
  Company Number: US-FRESENIUS KABI-FK201504702

PATIENT
  Age: 26 Year
  Sex: Male

DRUGS (1)
  1. ACETYLCYSTEINE (MANUFACTURER UNKNOWN) [Suspect]
     Active Substance: ACETYLCYSTEINE
     Indication: EXPOSURE TO TOXIC AGENT
     Route: 042

REACTIONS (2)
  - Compartment syndrome [Recovered/Resolved]
  - Extravasation [Recovered/Resolved]
